FAERS Safety Report 8463158-3 (Version None)
Quarter: 2012Q2

REPORT INFORMATION
  Report Type: 
  Country: None (occurrence: None)
  Receive Date: 20120625
  Receipt Date: 20120620
  Transmission Date: 20120825
  Serious: Yes (Death)
  Sender: FDA-Public Use
  Company Number: US-CELGENEUS-163-21880-12043095

PATIENT
  Sex: Male
  Weight: 79.55 kg

DRUGS (1)
  1. REVLIMID [Suspect]
     Indication: MULTIPLE MYELOMA
     Dosage: 5 MILLIGRAM
     Route: 048
     Dates: start: 20100801, end: 20111001

REACTIONS (3)
  - MULTIPLE MYELOMA [None]
  - NEOPLASM PROGRESSION [None]
  - RENAL FAILURE CHRONIC [None]
